FAERS Safety Report 4617061-7 (Version None)
Quarter: 2005Q1

REPORT INFORMATION
  Report Type: 
  Country: None (occurrence: None)
  Receive Date: 20050323
  Receipt Date: 20050311
  Transmission Date: 20050727
  Serious: Yes (Hospitalization)
  Sender: FDA-Public Use
  Company Number: CH-JNJFOC-20050301098

PATIENT
  Age: 77 Year
  Sex: Female

DRUGS (12)
  1. TRAMAL [Suspect]
     Route: 049
  2. ZOLOFT [Suspect]
     Route: 049
  3. SINTROM [Interacting]
     Indication: PULMONARY EMBOLISM
     Route: 049
  4. ATACAND [Concomitant]
     Indication: ESSENTIAL HYPERTENSION
     Route: 049
  5. TOREM [Concomitant]
     Indication: DRUG USE FOR UNKNOWN INDICATION
     Route: 049
  6. ALDACTONE [Concomitant]
     Route: 065
  7. INSULTARD HUMAN [Concomitant]
     Indication: DIABETES MELLITUS
     Route: 058
  8. METHOTREXATE [Concomitant]
     Route: 049
  9. METHOTREXATE [Concomitant]
     Route: 049
  10. INSULIN ACTRAPID [Concomitant]
     Route: 058
  11. DAFALGAN [Concomitant]
     Route: 049
  12. FOLVITE [Concomitant]
     Indication: DRUG USE FOR UNKNOWN INDICATION
     Route: 049

REACTIONS (3)
  - DRUG INTERACTION [None]
  - HAEMATEMESIS [None]
  - IRON DEFICIENCY ANAEMIA [None]
